FAERS Safety Report 7322624-4 (Version None)
Quarter: 2011Q1

REPORT INFORMATION
  Report Type: 
  Country: None (occurrence: None)
  Receive Date: 20110301
  Receipt Date: 20100203
  Transmission Date: 20110831
  Serious: No
  Sender: FDA-Public Use
  Company Number: US-PFIZER INC-2009310253

PATIENT
  Sex: Female
  Weight: 77.098 kg

DRUGS (7)
  1. PREMARIN [Concomitant]
     Indication: BLOOD OESTROGEN ABNORMAL
     Dosage: 0.9 MG, 1X/DAY
     Route: 048
  2. GLIPIZIDE [Suspect]
     Dosage: 2.5 MG, 2X/DAY
     Route: 048
     Dates: start: 20091112, end: 20091207
  3. GLUCOPHAGE XR [Concomitant]
     Indication: DIABETES MELLITUS
     Dosage: 500 MG, 2X/DAY
     Route: 048
  4. DIOVAN HCT [Concomitant]
     Indication: FLUID RETENTION
     Dosage: VALSARTAN 160 MG/ HYDROCHLOROTHIAZIDE 25MG
     Route: 048
  5. KLOR-CON [Concomitant]
     Indication: BLOOD POTASSIUM DECREASED
     Dosage: UNK
     Route: 048
  6. GLUCOTROL XL [Suspect]
     Indication: DIABETES MELLITUS
     Dosage: 5 MG, 1X/DAY
     Route: 048
  7. TRICOR [Concomitant]
     Indication: BLOOD CHOLESTEROL INCREASED
     Dosage: 145 MG, 1X/DAY
     Route: 048

REACTIONS (6)
  - ABDOMINAL PAIN LOWER [None]
  - DRUG INTOLERANCE [None]
  - VISION BLURRED [None]
  - SOMNOLENCE [None]
  - HYPERSOMNIA [None]
  - ASTHENOPIA [None]
